FAERS Safety Report 12913084 (Version 1)
Quarter: 2016Q4

REPORT INFORMATION
  Report Type: Spontaneous
  Country: US (occurrence: US)
  Receive Date: 20161104
  Receipt Date: 20161104
  Transmission Date: 20170207
  Serious: No
  Sender: FDA-Public Use
  Company Number: US-ANACOR-2016ANA00224

PATIENT
  Age: 72 Year
  Sex: Female

DRUGS (2)
  1. KERYDIN [Suspect]
     Active Substance: TAVABOROLE
     Indication: ONYCHOMYCOSIS
     Dosage: UNK, 1X/DAY
     Route: 061
     Dates: start: 201603, end: 201606
  2. UNSPECIFIED CONCOMITANT MEDICATIONS [Concomitant]

REACTIONS (4)
  - Application site exfoliation [Recovered/Resolved]
  - Application site erythema [Recovered/Resolved]
  - Application site pain [Recovered/Resolved]
  - Application site swelling [Recovered/Resolved]

NARRATIVE: CASE EVENT DATE: 201606
